FAERS Safety Report 14800700 (Version 1)
Quarter: 2018Q2

REPORT INFORMATION
  Report Type: Spontaneous
  Country: None (occurrence: GB)
  Receive Date: 20180424
  Receipt Date: 20180424
  Transmission Date: 20180711
  Serious: Yes (Hospitalization)
  Sender: FDA-Public Use
  Company Number: GB-MEDAC PHARMA, INC.-2046380

PATIENT
  Age: 71 Year
  Sex: Male

DRUGS (2)
  1. METOJECT [Suspect]
     Active Substance: METHOTREXATE SODIUM
     Indication: PRODUCT USED FOR UNKNOWN INDICATION
     Route: 065
  2. BENEPALI [Suspect]
     Active Substance: ETANERCEPT
     Route: 065

REACTIONS (2)
  - Lower respiratory tract infection [Unknown]
  - Hospitalisation [Unknown]

NARRATIVE: CASE EVENT DATE: 2017
